FAERS Safety Report 7767204-1 (Version None)
Quarter: 2011Q3

REPORT INFORMATION
  Report Type: 
  Country: None (occurrence: None)
  Receive Date: 20110922
  Receipt Date: 20110603
  Transmission Date: 20111222
  Serious: No
  Sender: FDA-Public Use
  Company Number: US-ASTRAZENECA-2011SE34321

PATIENT
  Age: 14 Year
  Sex: Female
  Weight: 63.5 kg

DRUGS (8)
  1. LATUDA [Suspect]
     Indication: ASPERGER'S DISORDER
     Route: 065
     Dates: start: 20110501
  2. GUANFACINE HYDROCHLORIDE [Suspect]
     Indication: ATTENTION DEFICIT/HYPERACTIVITY DISORDER
     Route: 065
  3. GUANFACINE HYDROCHLORIDE [Suspect]
     Indication: ASPERGER'S DISORDER
     Route: 065
  4. TRILEPTAL [Concomitant]
  5. SEROQUEL [Suspect]
     Indication: ASPERGER'S DISORDER
     Route: 048
  6. SEROQUEL [Suspect]
     Indication: ATTENTION DEFICIT/HYPERACTIVITY DISORDER
     Route: 048
  7. LATUDA [Suspect]
     Indication: ATTENTION DEFICIT/HYPERACTIVITY DISORDER
     Route: 065
     Dates: start: 20110501
  8. LORATADINE [Concomitant]

REACTIONS (3)
  - OFF LABEL USE [None]
  - FEELING COLD [None]
  - HEADACHE [None]
